FAERS Safety Report 25915307 (Version 1)
Quarter: 2025Q4

REPORT INFORMATION
  Report Type: Report from Study
  Country: IN (occurrence: IN)
  Receive Date: 20251013
  Receipt Date: 20251013
  Transmission Date: 20260117
  Serious: Yes (Other)
  Sender: PFIZER
  Company Number: IN-PFIZER INC-202500200156

PATIENT

DRUGS (4)
  1. CARBOPLATIN [Suspect]
     Active Substance: CARBOPLATIN
     Indication: Retinoblastoma
     Dosage: 30 MG, CYCLIC, (3 CYCLES)
     Route: 013
  2. MELPHALAN [Suspect]
     Active Substance: MELPHALAN
     Indication: Retinoblastoma
     Dosage: 5/7.5 MG, CYCLIC, (3 CYCLES)
     Route: 013
  3. TOPOTECAN [Suspect]
     Active Substance: TOPOTECAN HYDROCHLORIDE
     Indication: Retinoblastoma
     Dosage: 1/2 MG, CYCLIC, (3 CYCLES)
     Route: 013
  4. HEPARIN [Concomitant]
     Active Substance: HEPARIN SODIUM
     Indication: Anticoagulant therapy
     Dosage: 75 IU/KG
     Route: 042

REACTIONS (1)
  - Retinal degeneration [Unknown]
